FAERS Safety Report 6178066-0 (Version None)
Quarter: 2009Q2

REPORT INFORMATION
  Report Type: 
  Country: None (occurrence: None)
  Receive Date: 20090504
  Receipt Date: 20090130
  Transmission Date: 20091009
  Serious: No
  Sender: FDA-Public Use
  Company Number: US-ALEXION-A200900085

PATIENT
  Sex: Female

DRUGS (10)
  1. SOLIRIS [Suspect]
     Indication: PAROXYSMAL NOCTURNAL HAEMOGLOBINURIA
     Dosage: 600 MG, QWK
     Route: 042
     Dates: start: 20070605, end: 20070626
  2. SOLIRIS [Suspect]
     Dosage: 900 MG, Q2WK
     Route: 042
     Dates: start: 20070703
  3. XANAX [Concomitant]
     Indication: ANXIETY
     Dosage: UNK
     Dates: end: 20080808
  4. FLUOXETINE [Concomitant]
     Indication: ANXIETY
     Dosage: UNK
  5. FOSAMAX [Concomitant]
     Indication: OSTEOPOROSIS
     Dosage: ONCE A WEEK
  6. CALCIUM D                          /01272001/ [Concomitant]
     Indication: OSTEOPOROSIS
     Dosage: UNK
  7. SYNTHROID [Concomitant]
     Indication: HYPOTHYROIDISM
     Dosage: UNK
  8. DARVOCET                           /00220901/ [Concomitant]
     Indication: MIGRAINE
     Dosage: UNK
     Route: 048
  9. TYLENOL (CAPLET) [Concomitant]
     Indication: MIGRAINE
     Dosage: UNK
     Route: 048
  10. PREMARIN [Concomitant]
     Indication: HORMONE REPLACEMENT THERAPY
     Dosage: UNK
     Route: 048

REACTIONS (7)
  - CONJUNCTIVITIS [None]
  - EYE PAIN [None]
  - EYE PRURITUS [None]
  - HEADACHE [None]
  - OCULAR HYPERAEMIA [None]
  - ORAL PAIN [None]
  - SWELLING FACE [None]
